FAERS Safety Report 9798280 (Version 1)
Quarter: 2014Q1

REPORT INFORMATION
  Report Type: Spontaneous
  Country: US (occurrence: US)
  Receive Date: 20140106
  Receipt Date: 20140106
  Transmission Date: 20141002
  Serious: No
  Sender: FDA-Public Use
  Company Number: US-BAYER-2013-156518

PATIENT
  Age: 63 Year
  Sex: Female
  Weight: 79.82 kg

DRUGS (15)
  1. CLIMARA [Suspect]
     Indication: HOT FLUSH
     Dosage: 0.05 MG/24HR, UNK
     Route: 062
     Dates: start: 201311
  2. CLIMARA [Suspect]
     Indication: HOT FLUSH
     Dosage: 01 MG/24HR, UNK
     Route: 062
     Dates: start: 20131122
  3. MELOXICAM [Concomitant]
     Indication: ARTHRITIS
     Dosage: 15 MG, QD
     Route: 048
     Dates: start: 20131120, end: 20131126
  4. MELOXICAM [Concomitant]
     Indication: ARTHRITIS
     Dosage: 7.5 UNK, UNK
     Route: 048
     Dates: start: 20131203, end: 20131210
  5. LYRICA [Concomitant]
     Indication: ARTHRITIS
     Dosage: 50 MG, QD
     Route: 048
     Dates: start: 20131203, end: 20131210
  6. DIOVAN [Concomitant]
     Indication: HYPERTENSION
     Dosage: 80 MG, QD
     Route: 048
     Dates: start: 2003
  7. WELLBUTRIN [Concomitant]
     Indication: DEPRESSION
     Dosage: 300 MG, QD
     Route: 048
  8. PREVACID [Concomitant]
     Indication: DYSPEPSIA
     Dosage: 30 MG, QD
     Route: 048
  9. ROLAIDS [CALCIUM CARBONATE,MAGNESIUM HYDROXIDE] [Concomitant]
     Indication: DYSPEPSIA
     Dosage: UNK
     Route: 048
  10. MAALOX [Concomitant]
     Indication: DYSPEPSIA
     Dosage: UNK
     Route: 048
  11. ROBAXIN [Concomitant]
     Indication: MUSCULOSKELETAL PAIN
     Dosage: 500 MG, UNK
     Route: 048
  12. TRAMADOL [Concomitant]
     Indication: MUSCULOSKELETAL PAIN
     Dosage: 50 MG, UNK
     Route: 048
  13. ZANAFLEX [Concomitant]
     Indication: MUSCULOSKELETAL PAIN
     Dosage: UNK
     Route: 048
  14. PERCOCET [Concomitant]
     Indication: MUSCULOSKELETAL PAIN
     Dosage: UNK
     Route: 048
     Dates: start: 1995
  15. ALTREN [Concomitant]
     Indication: MUSCULOSKELETAL PAIN
     Dosage: 50 MG, UNK
     Route: 048
     Dates: start: 1995

REACTIONS (2)
  - Pollakiuria [Not Recovered/Not Resolved]
  - Extra dose administered [None]
